FAERS Safety Report 15140252 (Version 1)
Quarter: 2018Q3

REPORT INFORMATION
  Report Type: Spontaneous
  Country: US (occurrence: US)
  Receive Date: 20180713
  Receipt Date: 20180713
  Transmission Date: 20181010
  Serious: No
  Sender: FDA-Public Use
  Company Number: US-IPSEN BIOPHARMACEUTICALS, INC.-2018-10163

PATIENT
  Age: 67 Year
  Sex: Female

DRUGS (9)
  1. SYNTHROID [Concomitant]
     Active Substance: LEVOTHYROXINE SODIUM
  2. LEXAPRO [Concomitant]
     Active Substance: ESCITALOPRAM OXALATE
  3. LIPITOR [Concomitant]
     Active Substance: ATORVASTATIN CALCIUM
  4. VITAMIN D [Concomitant]
     Active Substance: CHOLECALCIFEROL
  5. SOMATULINE DEPOT [Suspect]
     Active Substance: LANREOTIDE ACETATE
     Indication: ACROMEGALY
     Dosage: 60 MG
     Route: 058
     Dates: start: 20150128
  6. IBUPROFEN. [Concomitant]
     Active Substance: IBUPROFEN
  7. LUMIGAN [Concomitant]
     Active Substance: BIMATOPROST
  8. SOMATULINE DEPOT [Suspect]
     Active Substance: LANREOTIDE ACETATE
     Indication: GIGANTISM
  9. FISH OIL [Concomitant]
     Active Substance: FISH OIL

REACTIONS (3)
  - Drug dose omission [Unknown]
  - Constipation [Unknown]
  - Inappropriate schedule of drug administration [Unknown]

NARRATIVE: CASE EVENT DATE: 20180530
